FAERS Safety Report 4481062-2 (Version None)
Quarter: 2004Q4

REPORT INFORMATION
  Report Type: 
  Country: None (occurrence: None)
  Receive Date: 20041021
  Receipt Date: 20040721
  Transmission Date: 20050328
  Serious: Yes (Hospitalization)
  Sender: FDA-Public Use
  Company Number: US-ROCHE-375212

PATIENT
  Age: 35 Year
  Sex: Male
  Weight: 67.1 kg

DRUGS (3)
  1. PEGASYS [Suspect]
     Indication: HEPATITIS C
     Route: 065
     Dates: start: 20040402, end: 20040507
  2. COPEGUS [Suspect]
     Indication: HEPATITIS C
     Route: 065
     Dates: start: 20040402, end: 20040507
  3. ATIVAN [Concomitant]
     Indication: NERVOUSNESS

REACTIONS (15)
  - BALANCE DISORDER [None]
  - BLOOD PRESSURE INCREASED [None]
  - CHILLS [None]
  - ERUCTATION [None]
  - HEADACHE [None]
  - INTRACRANIAL ANEURYSM [None]
  - MOOD ALTERED [None]
  - OPTIC NERVE DISORDER [None]
  - PAPILLOEDEMA [None]
  - PLATELET COUNT DECREASED [None]
  - RETINOPATHY [None]
  - SCOTOMA [None]
  - VOMITING [None]
  - WEIGHT DECREASED [None]
  - WHITE BLOOD CELL COUNT DECREASED [None]
